FAERS Safety Report 10447734 (Version 1)
Quarter: 2014Q3

REPORT INFORMATION
  Report Type: Report from Study
  Country: US (occurrence: US)
  Receive Date: 20140911
  Receipt Date: 20140911
  Transmission Date: 20150326
  Serious: Yes (Other)
  Sender: FDA-Public Use
  Company Number: PHEH2014US017858

PATIENT
  Sex: Female

DRUGS (1)
  1. GILENYA [Suspect]
     Active Substance: FINGOLIMOD HYDROCHLORIDE
     Indication: MULTIPLE SCLEROSIS
     Dosage: 0.5 MG, QD
     Route: 048

REACTIONS (19)
  - Pollakiuria [Unknown]
  - Gait disturbance [Unknown]
  - Sleep apnoea syndrome [Unknown]
  - Cognitive disorder [Unknown]
  - Snoring [Unknown]
  - Fatigue [Unknown]
  - Muscular weakness [Unknown]
  - Micturition urgency [Unknown]
  - Sleep disorder [Unknown]
  - Paraesthesia [Unknown]
  - Mood altered [Unknown]
  - Depression [Unknown]
  - Speech disorder [Unknown]
  - Headache [Unknown]
  - Pituitary tumour [Unknown]
  - Hypoaesthesia [Unknown]
  - Swelling [Unknown]
  - Anxiety [Unknown]
  - Migraine [Unknown]
